FAERS Safety Report 25682587 (Version 8)
Quarter: 2025Q4

REPORT INFORMATION
  Report Type: Report from Study
  Country: US (occurrence: US)
  Receive Date: 20250814
  Receipt Date: 20251119
  Transmission Date: 20260118
  Serious: Yes (Hospitalization, Other)
  Sender: AUROBINDO
  Company Number: US-AUROBINDO-AUR-APL-2025-041193

PATIENT
  Age: 35 Year
  Sex: Male
  Weight: 59.9 kg

DRUGS (57)
  1. PRALATREXATE [Suspect]
     Active Substance: PRALATREXATE
     Indication: Peripheral T-cell lymphoma unspecified stage IV
     Dosage: 30 MILLIGRAM/SQ. METER, CYCLICAL (CYCLE 1 DAY 1)
     Route: 065
     Dates: start: 20250307, end: 20250307
  2. PRALATREXATE [Suspect]
     Active Substance: PRALATREXATE
     Dosage: 30 MILLIGRAM/SQ. METER, CYCLICAL (CYCLE 1 DAY 8)
     Route: 065
     Dates: start: 20250314, end: 20250314
  3. PRALATREXATE [Suspect]
     Active Substance: PRALATREXATE
     Dosage: 30 MILLIGRAM/SQ. METER, CYCLICAL (CYCLE 2 DAY 1)
     Route: 065
     Dates: start: 20250328, end: 20250328
  4. PRALATREXATE [Suspect]
     Active Substance: PRALATREXATE
     Dosage: 30 MILLIGRAM/SQ. METER, CYCLICAL (CYCLE 2 DAY 8)
     Route: 065
     Dates: start: 20250404, end: 20250404
  5. PRALATREXATE [Suspect]
     Active Substance: PRALATREXATE
     Dosage: 30 MILLIGRAM/SQ. METER, CYCLICAL (CYCLE 2 DAY 8)
     Route: 065
     Dates: start: 20250418, end: 20250418
  6. PRALATREXATE [Suspect]
     Active Substance: PRALATREXATE
     Dosage: 30 MILLIGRAM/SQ. METER, CYCLICAL (CYCLE 3 DAY 8)
     Route: 065
     Dates: start: 20250425, end: 20250425
  7. PRALATREXATE [Suspect]
     Active Substance: PRALATREXATE
     Dosage: 30 MILLIGRAM/SQ. METER, CYCLICAL (CYCLE 4 DAY 1)
     Route: 065
     Dates: start: 20250509, end: 20250509
  8. PRALATREXATE [Suspect]
     Active Substance: PRALATREXATE
     Dosage: 30 MILLIGRAM/SQ. METER, CYCLICAL (CYCLE 4 DAY 8)
     Route: 065
     Dates: start: 20250516, end: 20250516
  9. PRALATREXATE [Suspect]
     Active Substance: PRALATREXATE
     Dosage: 30 MILLIGRAM/SQ. METER, CYCLICAL (CYCLE 5 DAY 1)
     Route: 065
     Dates: start: 20250530, end: 20250530
  10. PRALATREXATE [Suspect]
     Active Substance: PRALATREXATE
     Dosage: 30 MILLIGRAM/SQ. METER, CYCLICAL (CYCLE 5 DAY 8)
     Route: 065
     Dates: start: 20250606, end: 20250606
  11. PRALATREXATE [Suspect]
     Active Substance: PRALATREXATE
     Dosage: 30 MILLIGRAM/SQ. METER, CYCLICAL (CYCLE 1 DAY 1)
     Route: 065
     Dates: start: 20250618, end: 20250618
  12. PRALATREXATE [Suspect]
     Active Substance: PRALATREXATE
     Dosage: 30 MILLIGRAM/SQ. METER, CYCLICAL (CYCLE 1 DAY 1)
     Route: 065
     Dates: start: 20250627, end: 20250627
  13. CYCLOPHOSPHAMIDE [Suspect]
     Active Substance: CYCLOPHOSPHAMIDE
     Indication: Peripheral T-cell lymphoma unspecified stage IV
     Dosage: 750 MILLIGRAM/SQ. METER, CYCLICAL (CYCLE 1 DAY 1)
     Route: 065
     Dates: start: 20250307, end: 20250307
  14. CYCLOPHOSPHAMIDE [Suspect]
     Active Substance: CYCLOPHOSPHAMIDE
     Dosage: 750 MILLIGRAM/SQ. METER, CYCLICAL (CYCLE 2 DAY 1)
     Route: 065
     Dates: start: 20250328, end: 20250328
  15. CYCLOPHOSPHAMIDE [Suspect]
     Active Substance: CYCLOPHOSPHAMIDE
     Dosage: 750 MILLIGRAM/SQ. METER, CYCLICAL (CYCLE 2 DAY 1)
     Route: 065
     Dates: start: 20250418, end: 20250418
  16. CYCLOPHOSPHAMIDE [Suspect]
     Active Substance: CYCLOPHOSPHAMIDE
     Dosage: 750 MILLIGRAM/SQ. METER, CYCLICAL (CYCLE 4 DAY 1)
     Route: 065
     Dates: start: 20250509, end: 20250509
  17. CYCLOPHOSPHAMIDE [Suspect]
     Active Substance: CYCLOPHOSPHAMIDE
     Dosage: 750 MILLIGRAM/SQ. METER, CYCLICAL (CYCLE 5 DAY 1)
     Route: 065
     Dates: start: 20250530, end: 20250530
  18. CYCLOPHOSPHAMIDE [Suspect]
     Active Substance: CYCLOPHOSPHAMIDE
     Dosage: 1200 MILLIGRAM/SQ. METER, CYCLICAL (CYCLE 6 DAY 1) (PLANNED DOSE 1500 MILLIGRAM/SQ. METER)
     Route: 065
     Dates: start: 20250618, end: 20250618
  19. PREDNISONE [Suspect]
     Active Substance: PREDNISONE
     Indication: Peripheral T-cell lymphoma unspecified stage IV
     Dosage: 100 MILLIGRAM/SQ. METER, CYCLICAL (CYCLE 1 DAY 1)
     Route: 065
  20. PREDNISONE [Suspect]
     Active Substance: PREDNISONE
     Dosage: 100 MILLIGRAM/SQ. METER, CYCLICAL (CYCLE 1 DAY 2)
     Route: 065
  21. PREDNISONE [Suspect]
     Active Substance: PREDNISONE
     Dosage: 100 MILLIGRAM/SQ. METER, CYCLICAL (CYCLE 1 DAY 3)
     Route: 065
  22. PREDNISONE [Suspect]
     Active Substance: PREDNISONE
     Dosage: 100 MILLIGRAM/SQ. METER, CYCLICAL (CYCLE 1 DAY 4)
     Route: 065
  23. PREDNISONE [Suspect]
     Active Substance: PREDNISONE
     Dosage: 100 MILLIGRAM/SQ. METER, CYCLICAL (CYCLE 1 DAY 5)
     Route: 065
  24. PREDNISONE [Suspect]
     Active Substance: PREDNISONE
     Dosage: 100 MILLIGRAM/SQ. METER, CYCLICAL (CYCLE 2 DAY 1)
     Route: 065
  25. PREDNISONE [Suspect]
     Active Substance: PREDNISONE
     Dosage: 100 MILLIGRAM/SQ. METER, CYCLICAL (CYCLE 2 DAY 1)
     Route: 065
  26. PREDNISONE [Suspect]
     Active Substance: PREDNISONE
     Dosage: 100 MILLIGRAM/SQ. METER, CYCLICAL (CYCLE 2 DAY 3)
     Route: 065
  27. PREDNISONE [Suspect]
     Active Substance: PREDNISONE
     Dosage: 100 MILLIGRAM/SQ. METER, CYCLICAL (CYCLE 2 DAY 4)
     Route: 065
  28. PREDNISONE [Suspect]
     Active Substance: PREDNISONE
     Dosage: 100 MILLIGRAM/SQ. METER, CYCLICAL (CYCLE 2 DAY 5)
     Route: 065
  29. PREDNISONE [Suspect]
     Active Substance: PREDNISONE
     Dosage: 100 MILLIGRAM/SQ. METER, CYCLICAL (CYCLE 3 DAY 1
     Route: 065
  30. PREDNISONE [Suspect]
     Active Substance: PREDNISONE
     Dosage: 100 MILLIGRAM/SQ. METER, CYCLICAL (CYCLE 4 DAY 1
     Route: 065
  31. PREDNISONE [Suspect]
     Active Substance: PREDNISONE
     Dosage: 100 MILLIGRAM/SQ. METER, CYCLICAL (CYCLE 5 DAY 1
     Route: 065
  32. PREDNISONE [Suspect]
     Active Substance: PREDNISONE
     Dosage: 100 MILLIGRAM/SQ. METER, CYCLICAL (CYCLE 6 DAY 1
     Route: 065
  33. PREDNISONE [Suspect]
     Active Substance: PREDNISONE
     Dosage: 100 MILLIGRAM/SQ. METER, CYCLICAL(CYCLE 6 DAY 2
     Route: 065
  34. PREDNISONE [Suspect]
     Active Substance: PREDNISONE
     Dosage: 100 MILLIGRAM/SQ. METER, CYCLICAL(  CYCLE 6 DAY 3)
     Route: 065
  35. PREDNISONE [Suspect]
     Active Substance: PREDNISONE
     Dosage: 100 MILLIGRAM/SQ. METER, CYCLICAL( CYCLE 6 DAY 4)
     Route: 065
  36. PREDNISONE [Suspect]
     Active Substance: PREDNISONE
     Dosage: 100 MILLIGRAM/SQ. METER, CYCLICAL( CYCLE 6 DAY 5)
     Route: 065
  37. ONCOVIN [Suspect]
     Active Substance: VINCRISTINE SULFATE
     Indication: Peripheral T-cell lymphoma unspecified stage IV
     Dosage: 1.4 MILLIGRAM/SQ. METER, CYCLICAL (CYCLE 1 DAY 1)
     Route: 065
     Dates: start: 20250307, end: 20250307
  38. ONCOVIN [Suspect]
     Active Substance: VINCRISTINE SULFATE
     Dosage: 1.4 MILLIGRAM/SQ. METER, CYCLICAL (CYCLE 1 DAY 1)
     Route: 065
     Dates: start: 20250328, end: 20250328
  39. ONCOVIN [Suspect]
     Active Substance: VINCRISTINE SULFATE
     Dosage: 1.4 MILLIGRAM/SQ. METER, CYCLICAL (CYCLE 1 DAY 1)
     Route: 065
     Dates: start: 20250418, end: 20250418
  40. ONCOVIN [Suspect]
     Active Substance: VINCRISTINE SULFATE
     Dosage: 1.4 MILLIGRAM/SQ. METER, CYCLICAL (CYCLE 4 DAY 1)
     Route: 065
     Dates: start: 20250509, end: 20250509
  41. ONCOVIN [Suspect]
     Active Substance: VINCRISTINE SULFATE
     Dosage: 1.4 MILLIGRAM/SQ. METER, CYCLICAL (CYCLE 5 DAY 1)
     Route: 065
     Dates: start: 20250530, end: 20250530
  42. ONCOVIN [Suspect]
     Active Substance: VINCRISTINE SULFATE
     Dosage: 2.8 MILLIGRAM/SQ. METER, CYCLICAL (CYCLE 6 DAY 1)
     Route: 065
     Dates: start: 20250618, end: 20250618
  43. VITAMIN B12 [Concomitant]
     Active Substance: CYANOCOBALAMIN
     Indication: Product used for unknown indication
     Dosage: UNK
     Route: 065
  44. TRIAMCINOLONE [Concomitant]
     Active Substance: TRIAMCINOLONE
     Indication: Rash
     Dosage: 0.1 PERCENT, 3 TIMES A DAY
     Dates: start: 20241230, end: 20250207
  45. ZINC OXIDE [Concomitant]
     Active Substance: ZINC OXIDE
     Indication: Rash
     Dosage: 45 GRAM, AS NECESSARY
     Dates: start: 20250101, end: 20250207
  46. DIPHENHYDRAMINE [Concomitant]
     Active Substance: DIPHENHYDRAMINE
     Indication: Rash
     Dosage: 25 MILLIGRAM, FOUR TIMES/DAY
     Dates: start: 20250106, end: 20250218
  47. diphenhydrAMINE-zinc acetate [Concomitant]
     Indication: Rash
     Dosage: 15 GRAM, TWO TIMES A DAY
     Dates: start: 20250227
  48. ONDANSETRON [Concomitant]
     Active Substance: ONDANSETRON
     Indication: Prophylaxis of nausea and vomiting
     Dosage: 8 MILLIGRAM, 3 TIMES A DAY
     Dates: start: 20250307
  49. PROCHLORPERAZINE [Concomitant]
     Active Substance: PROCHLORPERAZINE
     Indication: Prophylaxis of nausea and vomiting
     Dosage: 10 MILLIGRAM, FOUR TIMES/DAY
     Dates: start: 20250307
  50. ONDANSETRON [Concomitant]
     Active Substance: ONDANSETRON
     Indication: Premedication
     Dosage: 8 MILLIGRAM, ONCE
     Dates: start: 20250314, end: 20250314
  51. PREDNISONE [Concomitant]
     Active Substance: PREDNISONE
     Indication: Product used for unknown indication
     Dosage: 60 MILLIGRAM, ONCE A DAY
     Dates: start: 20250228, end: 20250319
  52. Nirmatrelvir 150mg-Ritonavir 100mg (Paxlovid) [Concomitant]
     Indication: SARS-CoV-2 test positive
     Dosage: 3 DOSAGE FORM, TWO TIMES A DAY
     Dates: start: 20250328, end: 20250402
  53. TYLENOL [Concomitant]
     Active Substance: ACETAMINOPHEN
     Indication: SARS-CoV-2 test positive
     Dosage: 650 MILLIGRAM, ONCE
     Dates: start: 20250328, end: 20250328
  54. GUAIFENESIN [Concomitant]
     Active Substance: GUAIFENESIN
     Indication: Cough
     Dosage: 200 MILLIGRAM, 3 TIMES A DAY
     Dates: start: 20250418, end: 20250428
  55. GUAIFENESIN [Concomitant]
     Active Substance: GUAIFENESIN
     Indication: COVID-19
     Dosage: 120 MILLIGRAM, 3 TIMES A DAY
     Dates: start: 20250805, end: 20250808
  56. TESSALON [Concomitant]
     Active Substance: BENZONATATE
     Indication: Cough
     Dosage: 200 MILLIGRAM, 3 TIMES A DAY
     Dates: start: 20250530
  57. KLOR-CON [Concomitant]
     Active Substance: POTASSIUM CHLORIDE
     Indication: Hypokalaemia
     Dosage: 40 MILLIEQUIVALENT, ONCE
     Dates: start: 20250307, end: 20250307

REACTIONS (15)
  - Pyrexia [Not Recovered/Not Resolved]
  - COVID-19 [Recovered/Resolved]
  - Hypokalaemia [Recovered/Resolved]
  - White blood cell count decreased [Not Recovered/Not Resolved]
  - Blood lactate dehydrogenase increased [Not Recovered/Not Resolved]
  - Blood alkaline phosphatase increased [Not Recovered/Not Resolved]
  - Anaemia [Recovered/Resolved]
  - Weight decreased [Not Recovered/Not Resolved]
  - Sinus tachycardia [Recovered/Resolved]
  - Aspartate aminotransferase increased [Recovered/Resolved]
  - Alanine aminotransferase increased [Recovered/Resolved]
  - Epistaxis [Recovered/Resolved]
  - SARS-CoV-2 test positive [Recovered/Resolved]
  - Cough [Recovered/Resolved]
  - Neutrophil count decreased [Recovered/Resolved]

NARRATIVE: CASE EVENT DATE: 20250218
